FAERS Safety Report 7294651-7 (Version None)
Quarter: 2011Q1

REPORT INFORMATION
  Report Type: 
  Country: None (occurrence: None)
  Receive Date: 20110216
  Receipt Date: 20110203
  Transmission Date: 20110831
  Serious: Yes (Other)
  Sender: FDA-Public Use
  Company Number: US-RANBAXY-2011US-41717

PATIENT
  Age: 37 Year
  Sex: Male

DRUGS (4)
  1. SUMATRIPTAN [Concomitant]
     Indication: PRODUCT USED FOR UNKNOWN INDICATION
     Dosage: UNK
     Route: 058
  2. VERAPAMIL [Suspect]
     Indication: CLUSTER HEADACHE
     Dosage: 720MG, DAILY
     Route: 065
  3. GABAPENTIN [Concomitant]
     Indication: PROPHYLAXIS
     Dosage: UNK
     Route: 065
  4. VERAPAMIL [Suspect]
     Dosage: 840MG, UNK
     Route: 065

REACTIONS (2)
  - OFF LABEL USE [None]
  - ATRIOVENTRICULAR BLOCK FIRST DEGREE [None]
